FAERS Safety Report 10250373 (Version 1)
Quarter: 2014Q2

REPORT INFORMATION
  Report Type: Spontaneous
  Country: US (occurrence: None)
  Receive Date: 20140619
  Receipt Date: 20140619
  Transmission Date: 20141212
  Serious: Yes (Hospitalization)
  Sender: FDA-Public Use
  Company Number: None

PATIENT
  Age: 55 Year
  Sex: Male
  Weight: 131.8 kg

DRUGS (1)
  1. CETUXIMAB [Suspect]

REACTIONS (5)
  - Dehydration [None]
  - Oral pain [None]
  - Cardiac arrest [None]
  - Hypoxia [None]
  - Pulmonary embolism [None]
